FAERS Safety Report 8155567-7 (Version None)
Quarter: 2012Q1

REPORT INFORMATION
  Report Type: 
  Country: None (occurrence: None)
  Receive Date: 20120215
  Receipt Date: 20120203
  Transmission Date: 20120608
  Serious: Yes (Hospitalization)
  Sender: FDA-Public Use
  Company Number: 2012-0568

PATIENT

DRUGS (1)
  1. DYSPORT [Suspect]
     Indication: MUSCLE SPASTICITY

REACTIONS (1)
  - SEPSIS [None]
